FAERS Safety Report 16332311 (Version 1)
Quarter: 2019Q2

REPORT INFORMATION
  Report Type: Spontaneous
  Country: US (occurrence: US)
  Receive Date: 20190517
  Receipt Date: 20190517
  Transmission Date: 20190711
  Serious: Yes (Other)
  Sender: FDA-Public Use
  Company Number: None

PATIENT
  Age: 44 Year
  Sex: Female
  Weight: 75.3 kg

DRUGS (2)
  1. MULTI VITAMIN [Concomitant]
     Active Substance: VITAMINS
  2. MIRENA [Suspect]
     Active Substance: LEVONORGESTREL

REACTIONS (10)
  - Complication of device removal [None]
  - Headache [None]
  - Dizziness [None]
  - Abdominal distension [None]
  - Pain [None]
  - Nausea [None]
  - Fluid retention [None]
  - Agitation [None]
  - Ovarian cyst [None]
  - Alopecia [None]

NARRATIVE: CASE EVENT DATE: 20180430
